FAERS Safety Report 24458817 (Version 1)
Quarter: 2024Q4

REPORT INFORMATION
  Report Type: Spontaneous
  Country: US (occurrence: None)
  Receive Date: 20241017
  Receipt Date: 20241017
  Transmission Date: 20250115
  Serious: No
  Sender: Public
  Company Number: None

PATIENT
  Age: 62 Year
  Sex: Female

DRUGS (1)
  1. COSENTYX [Suspect]
     Active Substance: SECUKINUMAB
     Indication: Hidradenitis
     Dosage: OTHER FREQUENCY : A WEEK FOR 5 WEEKS, AS DIRECTED;?
     Route: 058
     Dates: start: 202404

REACTIONS (3)
  - Treatment delayed [None]
  - Pain [None]
  - Therapeutic product effect incomplete [None]
